FAERS Safety Report 7586502-8 (Version None)
Quarter: 2011Q3

REPORT INFORMATION
  Report Type: 
  Country: None (occurrence: None)
  Receive Date: 20110701
  Receipt Date: 20110609
  Transmission Date: 20111222
  Serious: Yes (Other)
  Sender: FDA-Public Use
  Company Number: US-BAYER-2010-003826

PATIENT
  Age: 27 Year
  Sex: Female
  Weight: 86.621 kg

DRUGS (4)
  1. CEPHALEXIN [Concomitant]
     Dosage: 500 MG, UNK
     Route: 048
     Dates: start: 20081119
  2. IBUPROFEN [Concomitant]
     Indication: HEADACHE
     Dosage: UNK UNK, PRN
     Route: 048
  3. YAZ [Suspect]
     Indication: CONTRACEPTION
     Dosage: UNK
     Route: 048
     Dates: start: 20070101, end: 20090801
  4. MULTI-VITAMIN [Concomitant]
     Dosage: UNK UNK, QD
     Route: 048

REACTIONS (6)
  - ABDOMINAL PAIN [None]
  - PROCEDURAL PAIN [None]
  - DYSPEPSIA [None]
  - GALLBLADDER DISORDER [None]
  - CHOLECYSTITIS CHRONIC [None]
  - INJURY [None]
